FAERS Safety Report 17511117 (Version 2)
Quarter: 2020Q3

REPORT INFORMATION
  Report Type: Spontaneous
  Country: US (occurrence: US)
  Receive Date: 20200306
  Receipt Date: 20200813
  Transmission Date: 20201102
  Serious: Yes (Other)
  Sender: FDA-Public Use
  Company Number: US-SHIRE-US202008437

PATIENT
  Age: 73 Year
  Sex: Female
  Weight: 78.46 kg

DRUGS (5)
  1. CHLORTHALIDONE. [Concomitant]
     Active Substance: CHLORTHALIDONE
     Indication: PRODUCT USED FOR UNKNOWN INDICATION
  2. TELMISARTAN. [Concomitant]
     Active Substance: TELMISARTAN
     Indication: PRODUCT USED FOR UNKNOWN INDICATION
     Dosage: UNK
  3. ASPIRIN [ACETYLSALICYLIC ACID] [Concomitant]
     Active Substance: ASPIRIN
     Indication: PRODUCT USED FOR UNKNOWN INDICATION
  4. PROPYLTHIOURACIL. [Concomitant]
     Active Substance: PROPYLTHIOURACIL
     Indication: PRODUCT USED FOR UNKNOWN INDICATION
  5. XIIDRA [Suspect]
     Active Substance: LIFITEGRAST
     Indication: DRY EYE
     Dosage: 1 GTT DROPS, 2X/DAY:BID
     Route: 047
     Dates: start: 202002, end: 20200302

REACTIONS (5)
  - Nausea [Recovered/Resolved]
  - Illness [Recovered/Resolved]
  - Loss of consciousness [Recovered/Resolved]
  - Dizziness [Recovered/Resolved]
  - Anxiety [Recovered/Resolved]

NARRATIVE: CASE EVENT DATE: 202002
